FAERS Safety Report 12271204 (Version 1)
Quarter: 2016Q2

REPORT INFORMATION
  Report Type: Spontaneous
  Country: US (occurrence: US)
  Receive Date: 20160415
  Receipt Date: 20160415
  Transmission Date: 20160815
  Serious: No
  Sender: FDA-Public Use
  Company Number: US-PFM-US-2016-0229

PATIENT
  Sex: Female
  Weight: 5.4 kg

DRUGS (5)
  1. HEMANGEOL [Suspect]
     Active Substance: PROPRANOLOL HYDROCHLORIDE
     Indication: EYELID HAEMANGIOMA
     Dosage: 0.5 ML, BID (2/DAY)
     Route: 048
     Dates: start: 20151106, end: 20151112
  2. HEMANGEOL [Suspect]
     Active Substance: PROPRANOLOL HYDROCHLORIDE
     Dosage: 0.9 ML, BID (2/DAY)
     Route: 048
     Dates: start: 20151113, end: 20151119
  3. HEMANGEOL [Suspect]
     Active Substance: PROPRANOLOL HYDROCHLORIDE
     Dosage: 2 ML, BID (2/DAY)
     Route: 048
     Dates: start: 20151217, end: 20160111
  4. HEMANGEOL [Suspect]
     Active Substance: PROPRANOLOL HYDROCHLORIDE
     Dosage: 1.2 ML, BID (2/DAY)
     Route: 048
     Dates: start: 20151114, end: 20151216
  5. HEMANGEOL [Suspect]
     Active Substance: PROPRANOLOL HYDROCHLORIDE
     Dosage: 2.6 ML, BID (2/DAY)
     Route: 048
     Dates: start: 20160120

REACTIONS (1)
  - Bronchitis [Recovered/Resolved]
